FAERS Safety Report 6645208-X (Version None)
Quarter: 2010Q1

REPORT INFORMATION
  Report Type: 
  Country: None (occurrence: None)
  Receive Date: 20100322
  Receipt Date: 20090928
  Transmission Date: 20100710
  Serious: Yes (Death)
  Sender: FDA-Public Use
  Company Number: PHEH2009US18950

PATIENT
  Sex: Female

DRUGS (8)
  1. GLEEVEC [Suspect]
     Indication: ACUTE LYMPHOCYTIC LEUKAEMIA
     Dosage: 200 MG, BID
     Route: 048
     Dates: start: 20090601, end: 20090701
  2. ZOLOFT [Concomitant]
  3. TOPROL-XL [Concomitant]
  4. PROTONIX [Concomitant]
  5. VALTREX [Concomitant]
  6. PREDNISONE TAB [Concomitant]
  7. PROGRAF [Concomitant]
  8. MAGNESIUM OXIDE [Concomitant]

REACTIONS (1)
  - DEATH [None]
